FAERS Safety Report 7909419-5 (Version None)
Quarter: 2011Q4

REPORT INFORMATION
  Report Type: 
  Country: None (occurrence: None)
  Receive Date: 20111111
  Receipt Date: 20111109
  Transmission Date: 20120403
  Serious: Yes (Other)
  Sender: FDA-Public Use
  Company Number: US-SHIRE-ALL1-2011-04384

PATIENT
  Sex: Male
  Weight: 93.878 kg

DRUGS (3)
  1. LIALDA [Suspect]
     Indication: COLITIS ULCERATIVE
     Dosage: 2.4 G, 2X/DAY:BID
     Route: 048
     Dates: start: 20110501
  2. PREDNISONE TAB [Concomitant]
     Indication: COLITIS ULCERATIVE
     Dosage: UNK, UNKNOWN
     Route: 048
     Dates: end: 20110101
  3. PREDNISONE TAB [Concomitant]
     Dosage: UNK, UNKNOWN
     Route: 048
     Dates: start: 20110101

REACTIONS (6)
  - DIABETES MELLITUS [None]
  - INAPPROPRIATE SCHEDULE OF DRUG ADMINISTRATION [None]
  - COLITIS ULCERATIVE [None]
  - MUSCLE ATROPHY [None]
  - ASTHENIA [None]
  - DRUG INEFFECTIVE [None]
